FAERS Safety Report 6128947-9 (Version None)
Quarter: 2009Q1

REPORT INFORMATION
  Report Type: 
  Country: None (occurrence: None)
  Receive Date: 20090324
  Receipt Date: 20090313
  Transmission Date: 20090719
  Serious: Yes (Other)
  Sender: FDA-Public Use
  Company Number: PHHY2009BR09518

PATIENT
  Sex: Female
  Weight: 80 kg

DRUGS (5)
  1. FLOTAC [Suspect]
     Indication: OSTEOARTHRITIS
     Dosage: 2 CASULE PER DAY
     Route: 048
     Dates: start: 20090217, end: 20090313
  2. FLOTAC [Suspect]
     Dosage: 1 CASULE PER DAY
     Route: 048
  3. CLORANA [Concomitant]
     Indication: OEDEMA PERIPHERAL
     Dosage: 1 TABLET IN THE MORNING
     Route: 048
     Dates: start: 20090227, end: 20090313
  4. TENORETIC 100 [Concomitant]
     Indication: HYPERTENSION
     Dosage: 1 TABLET PER DAY
     Route: 048
  5. ZYLORIC [Concomitant]
     Indication: BLOOD URIC ACID
     Dosage: 1 TABLET PER DAY
     Route: 048
     Dates: end: 20090316

REACTIONS (9)
  - ABDOMINAL PAIN [None]
  - ANAL HAEMORRHAGE [None]
  - ANORECTAL DISORDER [None]
  - ARTHRALGIA [None]
  - CHEST PAIN [None]
  - GAIT DISTURBANCE [None]
  - OEDEMA PERIPHERAL [None]
  - POLLAKIURIA [None]
  - PROCTALGIA [None]
